FAERS Safety Report 7738943-3 (Version None)
Quarter: 2011Q3

REPORT INFORMATION
  Report Type: 
  Country: None (occurrence: None)
  Receive Date: 20110909
  Receipt Date: 20110830
  Transmission Date: 20111222
  Serious: No
  Sender: FDA-Public Use
  Company Number: US-BIOGENIDEC-2011BI023902

PATIENT
  Age: 51 Year
  Sex: Female

DRUGS (3)
  1. VALIUM [Concomitant]
     Indication: PREMEDICATION
     Dates: end: 20110101
  2. TYSABRI [Suspect]
     Indication: MULTIPLE SCLEROSIS
     Route: 042
     Dates: start: 20110620, end: 20110727
  3. ATIVAN [Concomitant]
     Indication: PREMEDICATION
     Dates: end: 20110101

REACTIONS (9)
  - PAIN IN EXTREMITY [None]
  - HYPOAESTHESIA [None]
  - ANXIETY [None]
  - THROAT TIGHTNESS [None]
  - MOVEMENT DISORDER [None]
  - DYSPHAGIA [None]
  - STOMATITIS [None]
  - TREMOR [None]
  - ARTHRALGIA [None]
